FAERS Safety Report 10128702 (Version 1)
Quarter: 2014Q2

REPORT INFORMATION
  Report Type: Spontaneous
  Country: US (occurrence: US)
  Receive Date: 20140428
  Receipt Date: 20140428
  Transmission Date: 20141212
  Serious: No
  Sender: FDA-Public Use
  Company Number: US-B.I. PHARMACEUTICALS,INC./RIDGEFIELD-2014-BI-17783BP

PATIENT
  Age: 69 Year
  Sex: Female

DRUGS (10)
  1. ESTRADIOL [Concomitant]
     Dosage: 1 MG
     Route: 048
  2. SERTERALINE [Concomitant]
     Indication: DEPRESSION
     Dosage: 100 MG
     Route: 048
  3. SERTERALINE [Concomitant]
     Indication: ANXIETY
  4. LOSARTAN [Concomitant]
     Dosage: 25 MG
     Route: 048
  5. ACROBASE [Concomitant]
     Indication: HYPOGLYCAEMIA
     Route: 048
  6. AMIODARONE [Concomitant]
     Indication: ATRIAL FIBRILLATION
     Dosage: 200 MG
     Route: 048
  7. ROPINIROLE [Concomitant]
     Indication: RESTLESS LEGS SYNDROME
     Dosage: 0.5 MG
     Route: 048
  8. TRIAMTERENE/HCT [Concomitant]
     Indication: FLUID RETENTION
     Dosage: 37.5 MG
     Route: 048
  9. PRADAXA [Suspect]
     Indication: ATRIAL FIBRILLATION
     Dosage: 300 MG
     Route: 048
     Dates: start: 2013
  10. SIMVASTATIN [Concomitant]
     Dosage: 20 MG
     Route: 048

REACTIONS (4)
  - Vitamin D decreased [Not Recovered/Not Resolved]
  - Vitamin B12 decreased [Not Recovered/Not Resolved]
  - Liver function test abnormal [Not Recovered/Not Resolved]
  - Contusion [Not Recovered/Not Resolved]
